FAERS Safety Report 17480920 (Version 2)
Quarter: 2020Q1

REPORT INFORMATION
  Report Type: Spontaneous
  Country: US (occurrence: US)
  Receive Date: 20200302
  Receipt Date: 20200327
  Transmission Date: 20200409
  Serious: No
  Sender: FDA-Public Use
  Company Number: US-AMGEN-USASP2020032155

PATIENT
  Age: 41 Year
  Sex: Female
  Weight: 51.2 kg

DRUGS (2)
  1. NEULASTA [Suspect]
     Active Substance: PEGFILGRASTIM
     Indication: PROPHYLAXIS
     Dosage: 6 MILLIGRAM, Q2WK
     Route: 058
  2. PACLITAXEL. [Concomitant]
     Active Substance: PACLITAXEL
     Indication: BREAST CANCER
     Dosage: 175 MILLIGRAM/SQ. METER, Q2WK
     Dates: start: 20200227

REACTIONS (3)
  - Gait disturbance [Unknown]
  - Myalgia [Unknown]
  - Pain in extremity [Unknown]
